FAERS Safety Report 6962343-7 (Version None)
Quarter: 2010Q3

REPORT INFORMATION
  Report Type: 
  Country: None (occurrence: None)
  Receive Date: 20100902
  Receipt Date: 20100823
  Transmission Date: 20110219
  Serious: Yes (Hospitalization)
  Sender: FDA-Public Use
  Company Number: US-BAYER-201019378BCC

PATIENT
  Age: 73 Year
  Sex: Female
  Weight: 45 kg

DRUGS (2)
  1. BAYER BACK + BODY ASPIRIN [Suspect]
     Indication: SPINAL FRACTURE
     Dosage: TOTAL DAILY DOSE: 6 DF  UNIT DOSE: 1 DF
     Route: 048
     Dates: start: 20091001, end: 20100801
  2. ENSURE PLUS [Concomitant]
     Route: 065

REACTIONS (2)
  - ABDOMINAL PAIN UPPER [None]
  - ULCER HAEMORRHAGE [None]
